FAERS Safety Report 5412667-X (Version None)
Quarter: 2007Q3

REPORT INFORMATION
  Report Type: 
  Country: None (occurrence: None)
  Receive Date: 20070813
  Receipt Date: 20070807
  Transmission Date: 20080115
  Serious: Yes (Other)
  Sender: FDA-Public Use
  Company Number: BE-SANOFI-SYNTHELABO-A01200706760

PATIENT
  Sex: Female
  Weight: 119 kg

DRUGS (1)
  1. DANATROL [Suspect]
     Indication: ENDOMETRIOSIS
     Dosage: UNK
     Route: 048
     Dates: start: 19890601, end: 19900101

REACTIONS (2)
  - DEMYELINATION [None]
  - WEIGHT INCREASED [None]
